FAERS Safety Report 7166658-1 (Version None)
Quarter: 2010Q4

REPORT INFORMATION
  Report Type: 
  Country: None (occurrence: None)
  Receive Date: 20101203
  Receipt Date: 20101126
  Transmission Date: 20110411
  Serious: Yes (Other)
  Sender: FDA-Public Use
  Company Number: GER/UKI/10/0016784

PATIENT
  Sex: Female

DRUGS (3)
  1. FLUCONAZOLE [Suspect]
     Indication: CANDIDIASIS
     Dosage: 150 MG, 1 IN 1  TOTAL
  2. CILEST (CILEST) [Suspect]
     Indication: CONTRACEPTION
  3. CLOTRIMAZOLE [Suspect]
     Indication: CANDIDIASIS
     Dosage: 1 DOSAGE FORMS, 1 IN 1 D

REACTIONS (1)
  - METRORRHAGIA [None]
